FAERS Safety Report 6691292-7 (Version None)
Quarter: 2010Q2

REPORT INFORMATION
  Report Type: 
  Country: None (occurrence: None)
  Receive Date: 20100416
  Receipt Date: 20100408
  Transmission Date: 20101027
  Serious: Yes (Death)
  Sender: FDA-Public Use
  Company Number: 009265

PATIENT

DRUGS (8)
  1. PLETAL [Suspect]
     Indication: ARTERIOSCLEROSIS OBLITERANS
     Dosage: 50 MG, QD, ORAL
     Route: 048
     Dates: start: 20090824, end: 20091022
  2. ASPIRIN [Suspect]
     Dosage: 100 MG, QD, ORAL
     Route: 048
     Dates: end: 20091022
  3. BLOPRESS (CANDESARTAN CILEXETIL) TABLET [Concomitant]
  4. AMLODIN (AMLODIPINE BESILATE) TABLET [Concomitant]
  5. PARIET (RABEPRAZOLE SODIUM) TABLET [Concomitant]
  6. URSO (URSODEOXYCHOLIC ACID) TABLET [Concomitant]
  7. LASIX [Concomitant]
  8. ALDACTONE [Concomitant]

REACTIONS (2)
  - DISEASE RECURRENCE [None]
  - HEPATIC NEOPLASM MALIGNANT [None]
